FAERS Safety Report 9146236 (Version 1)
Quarter: 2013Q1

REPORT INFORMATION
  Report Type: Spontaneous
  Country: US (occurrence: US)
  Receive Date: 20130307
  Receipt Date: 20130307
  Transmission Date: 20140127
  Serious: Yes (Other)
  Sender: FDA-Public Use
  Company Number: US-PFIZER INC-2013076923

PATIENT
  Age: 70 Year
  Sex: Female
  Weight: 104.76 kg

DRUGS (9)
  1. LYRICA [Suspect]
     Indication: MUSCULOSKELETAL PAIN
     Dosage: 75 MG, 2X/DAY
     Route: 048
     Dates: start: 20130204, end: 201302
  2. LYRICA [Suspect]
     Indication: BACK PAIN
     Dosage: 75 MG, 3X/DAY
     Route: 048
     Dates: start: 201302, end: 201302
  3. LYRICA [Suspect]
     Indication: NECK PAIN
     Dosage: 150 MG, 2X/DAY
     Route: 048
     Dates: start: 201302, end: 201302
  4. LYRICA [Suspect]
     Indication: PAIN IN EXTREMITY
     Dosage: 75 MG, 2X/DAY
     Route: 048
     Dates: start: 201302, end: 20130302
  5. LYRICA [Suspect]
     Dosage: 75 MG, 1X/DAY
     Route: 048
     Dates: start: 20130302, end: 20130303
  6. LYRICA [Suspect]
     Dosage: 75 MG, 2X/DAY
     Route: 048
     Dates: start: 20130303
  7. METOPROLOL [Concomitant]
     Indication: HYPERTENSION
     Dosage: UNK
  8. ALPRAZOLAM [Concomitant]
     Indication: NERVOUS SYSTEM DISORDER
     Dosage: 5 MG, AS NEEDED
  9. SIMVASTATIN [Concomitant]
     Indication: HYPERTENSION
     Dosage: 10 MG, 1X/DAY

REACTIONS (7)
  - Dyspnoea [Not Recovered/Not Resolved]
  - Swelling face [Not Recovered/Not Resolved]
  - Oedema mouth [Not Recovered/Not Resolved]
  - Oedema peripheral [Not Recovered/Not Resolved]
  - Intentional drug misuse [Unknown]
  - Gait disturbance [Unknown]
  - Speech disorder [Unknown]
